FAERS Safety Report 7862425-1 (Version None)
Quarter: 2011Q4

REPORT INFORMATION
  Report Type: 
  Country: None (occurrence: None)
  Receive Date: 20111027
  Receipt Date: 20101108
  Transmission Date: 20120403
  Serious: No
  Sender: FDA-Public Use
  Company Number: US-AMGEN-USASP2010003841

PATIENT
  Age: 29 Year
  Sex: Female

DRUGS (2)
  1. ENBREL [Suspect]
     Indication: PSORIATIC ARTHROPATHY
     Dosage: 50 MG, 2 TIMES/WK
     Dates: start: 20100901
  2. ENBREL [Suspect]
     Indication: PSORIASIS

REACTIONS (5)
  - INJECTION SITE PAIN [None]
  - PAIN IN EXTREMITY [None]
  - NASOPHARYNGITIS [None]
  - MUSCULOSKELETAL STIFFNESS [None]
  - INJECTION SITE HAEMATOMA [None]
